FAERS Safety Report 10161935 (Version 2)
Quarter: 2015Q1

REPORT INFORMATION
  Report Type: Spontaneous
  Country: US (occurrence: None)
  Receive Date: 20140507
  Receipt Date: 20150102
  Transmission Date: 20150720
  Serious: Yes (Other)
  Sender: FDA-Public Use
  Company Number: 1713747-2014-99962

PATIENT
  Age: 65 Year
  Sex: Male
  Weight: 82.5 kg

DRUGS (3)
  1. DELFLEX WITH DEXTROSE 2.5% LOW MAGNESIUM LOW CALCIUM [Suspect]
     Active Substance: CALCIUM CHLORIDE\DEXTROSE MONOHYDRATE\MAGNESIUM CHLORIDE\SODIUM CHLORIDE\SODIUM LACTATE
     Indication: CHRONIC KIDNEY DISEASE
     Dosage: DAILY, IP
     Route: 033
  2. LIBERTY CYCLER CASSETTE [Concomitant]
     Active Substance: DEVICE
  3. LIBERTY CYCLER [Concomitant]
     Active Substance: DEVICE

REACTIONS (3)
  - Peritonitis [None]
  - Product contamination [None]
  - Staphylococcal infection [None]

NARRATIVE: CASE EVENT DATE: 20140414
